FAERS Safety Report 10103677 (Version 2)
Quarter: 2014Q2

REPORT INFORMATION
  Report Type: Spontaneous
  Country: AU (occurrence: AU)
  Receive Date: 20140424
  Receipt Date: 20140507
  Transmission Date: 20141212
  Serious: Yes (Other)
  Sender: FDA-Public Use
  Company Number: AU-BAYER-2014-056547

PATIENT
  Sex: Female

DRUGS (2)
  1. CANESTEN CLOTRIMAZOLE THRUSH TREATMENT [Suspect]
     Dosage: UNK
     Dates: start: 20140404, end: 20140409
  2. HUMIRA [Concomitant]

REACTIONS (3)
  - Vulvovaginal injury [None]
  - Pain of skin [None]
  - Medical device discomfort [None]
